FAERS Safety Report 22083207 (Version 2)
Quarter: 2023Q1

REPORT INFORMATION
  Report Type: Report from Study
  Country: IT (occurrence: IT)
  Receive Date: 20230310
  Receipt Date: 20230328
  Transmission Date: 20230417
  Serious: Yes (Other)
  Sender: FDA-Public Use
  Company Number: None

PATIENT

DRUGS (7)
  1. PEGASPARGASE [Suspect]
     Active Substance: PEGASPARGASE
     Indication: Acute lymphocytic leukaemia recurrent
     Dosage: 1007.50 U/I
     Route: 042
     Dates: start: 20230213, end: 20230213
  2. ELDISINE [Suspect]
     Active Substance: VINDESINE SULFATE
     Indication: Acute lymphocytic leukaemia recurrent
     Dosage: 3 MG/DAY
     Route: 042
     Dates: start: 20230207, end: 20230207
  3. METHOTREXATE (METHOTREXATE SODIUM) [Suspect]
     Active Substance: METHOTREXATE SODIUM
     Indication: Acute lymphocytic leukaemia recurrent
     Dosage: 1006 MG FROM 08 TO 09/02/23
     Route: 042
     Dates: start: 20230208, end: 20230209
  4. IFOSFAMIDE [Suspect]
     Active Substance: IFOSFAMIDE
     Indication: Acute lymphocytic leukaemia recurrent
     Dosage: 400 MG/ DAY
     Route: 042
     Dates: start: 20230207, end: 20230211
  5. THIOGUANINE ANHYDROUS [Suspect]
     Active Substance: THIOGUANINE ANHYDROUS
     Indication: Acute lymphocytic leukaemia recurrent
     Dosage: 100 MG/DAILY
     Route: 048
     Dates: start: 20230207, end: 20230211
  6. DAUNORUBICIN [Suspect]
     Active Substance: DAUNORUBICIN
     Indication: Acute lymphocytic leukaemia recurrent
     Dosage: 35.26 MG/DAILY
     Route: 042
     Dates: start: 20230211, end: 20230211
  7. Decapeptyl [Concomitant]
     Indication: Product used for unknown indication
     Dosage: 0.1 MG/DAY
     Route: 030
     Dates: start: 20230222, end: 20230222

REACTIONS (4)
  - Anaemia [Recovering/Resolving]
  - Stomatitis [Recovered/Resolved]
  - Thrombocytopenia [Recovered/Resolved]
  - Pancytopenia [Not Recovered/Not Resolved]

NARRATIVE: CASE EVENT DATE: 20230213
